FAERS Safety Report 10638565 (Version 1)
Quarter: 2014Q4

REPORT INFORMATION
  Report Type: Spontaneous
  Country: FR (occurrence: FR)
  Receive Date: 20141208
  Receipt Date: 20141208
  Transmission Date: 20150529
  Serious: Yes (Hospitalization)
  Sender: FDA-Public Use
  Company Number: PHHY2014FR156390

PATIENT
  Age: 76 Year
  Sex: Male
  Weight: 70 kg

DRUGS (42)
  1. VINCRISTINE HOSPIRA [Suspect]
     Active Substance: VINCRISTINE
     Indication: ACUTE LYMPHOCYTIC LEUKAEMIA
     Dosage: 1 MG, UNK
     Route: 042
     Dates: start: 20140717
  2. DEXAMETHASONE. [Suspect]
     Active Substance: DEXAMETHASONE
     Dosage: 40 MG, UNK
     Route: 065
     Dates: start: 20140808
  3. DEPO-MEDROL [Suspect]
     Active Substance: METHYLPREDNISOLONE ACETATE
     Dosage: 40 MG, UNK
     Route: 037
     Dates: start: 20140808
  4. ACUPAN [Concomitant]
     Active Substance: NEFOPAM HYDROCHLORIDE
     Indication: PRODUCT USED FOR UNKNOWN INDICATION
     Dosage: 1 DF, TID
     Route: 065
     Dates: start: 20140727
  5. DEPAMIDE [Concomitant]
     Active Substance: VALPROMIDE
     Indication: PRODUCT USED FOR UNKNOWN INDICATION
     Dosage: UNK
     Route: 065
  6. CYTARABINE. [Suspect]
     Active Substance: CYTARABINE
     Indication: ACUTE LYMPHOCYTIC LEUKAEMIA
     Dosage: 40 MG, UNK
     Route: 037
     Dates: start: 20140725
  7. VINCRISTINE HOSPIRA [Suspect]
     Active Substance: VINCRISTINE
     Dosage: 1 MG, UNK
     Route: 065
     Dates: start: 20140724
  8. DEXAMETHASONE. [Suspect]
     Active Substance: DEXAMETHASONE
     Dosage: 40 MG, UNK
     Route: 065
     Dates: start: 20140718
  9. LASILIX [Concomitant]
     Active Substance: FUROSEMIDE
     Indication: PRODUCT USED FOR UNKNOWN INDICATION
     Dosage: 20 MG, QD
     Route: 048
     Dates: start: 201408
  10. CYTARABINE. [Suspect]
     Active Substance: CYTARABINE
     Dosage: 40 MG, UNK
     Route: 037
     Dates: start: 20140801
  11. METHOTREXATE [Suspect]
     Active Substance: METHOTREXATE
     Indication: ACUTE LYMPHOCYTIC LEUKAEMIA
     Dosage: 15 MG, UNK
     Route: 037
     Dates: start: 20140717
  12. DEXAMETHASONE. [Suspect]
     Active Substance: DEXAMETHASONE
     Dosage: 40 MG, UNK
     Route: 065
     Dates: start: 20140724
  13. DEXAMETHASONE. [Suspect]
     Active Substance: DEXAMETHASONE
     Dosage: 40 MG, UNK
     Route: 065
     Dates: start: 20140725
  14. DEXAMETHASONE. [Suspect]
     Active Substance: DEXAMETHASONE
     Dosage: 40 MG, UNK
     Route: 065
     Dates: start: 20140731
  15. DEPO-MEDROL [Suspect]
     Active Substance: METHYLPREDNISOLONE ACETATE
     Dosage: 40 MG, UNK
     Route: 037
     Dates: start: 20140801
  16. TOPALGIC//TRAMADOL HYDROCHLORIDE [Concomitant]
     Active Substance: TRAMADOL HYDROCHLORIDE
     Dosage: 300 MG, PER 24 H
     Route: 042
     Dates: start: 20140728, end: 20140729
  17. SMECTA [Concomitant]
     Active Substance: MONTMORILLONITE
     Indication: PRODUCT USED FOR UNKNOWN INDICATION
     Dosage: 3 DF, QD
     Route: 048
     Dates: start: 201408
  18. TRIFLUCAN [Concomitant]
     Active Substance: FLUCONAZOLE
     Indication: PRODUCT USED FOR UNKNOWN INDICATION
     Dosage: 100 MG, QD
     Route: 065
     Dates: start: 20140728
  19. GLUCOSE [Concomitant]
     Active Substance: DEXTROSE
     Dosage: 1 L, UNK
     Dates: start: 201408
  20. METHOTREXATE [Suspect]
     Active Substance: METHOTREXATE
     Dosage: 15 MG, UNK
     Route: 037
     Dates: start: 20140801
  21. VINCRISTINE HOSPIRA [Suspect]
     Active Substance: VINCRISTINE
     Dosage: 1 MG, UNK
     Route: 065
     Dates: start: 20140731
  22. DEXAMETHASONE. [Suspect]
     Active Substance: DEXAMETHASONE
     Dosage: 18.3 MG, QD
     Route: 042
     Dates: start: 20140717, end: 20140717
  23. DEPO-MEDROL [Suspect]
     Active Substance: METHYLPREDNISOLONE ACETATE
     Indication: ACUTE LYMPHOCYTIC LEUKAEMIA
     Dosage: 40 MG, UNK
     Route: 037
     Dates: start: 20140725
  24. TOPALGIC//TRAMADOL HYDROCHLORIDE [Concomitant]
     Active Substance: TRAMADOL HYDROCHLORIDE
     Indication: PRODUCT USED FOR UNKNOWN INDICATION
     Dosage: 500 MG, PER 24 H
     Route: 042
     Dates: start: 20140728, end: 20140801
  25. GRANOCYTE [Concomitant]
     Active Substance: LENOGRASTIM
     Indication: PRODUCT USED FOR UNKNOWN INDICATION
     Dosage: 263 OT, UNK
     Route: 058
     Dates: start: 20140731
  26. TRIATEC [Concomitant]
     Active Substance: RAMIPRIL
     Indication: HYPERTENSION
     Dosage: 5 MG, QD
     Route: 048
  27. AMLOR [Concomitant]
     Active Substance: AMLODIPINE BESYLATE
     Indication: HYPERTENSION
     Dosage: 5 MG, QD
     Route: 048
     Dates: start: 201408
  28. VINCRISTINE HOSPIRA [Suspect]
     Active Substance: VINCRISTINE
     Dosage: 1 MG, UNK
     Route: 065
     Dates: start: 20140807
  29. DEXAMETHASONE. [Suspect]
     Active Substance: DEXAMETHASONE
     Dosage: 40 MG, UNK
     Route: 065
     Dates: start: 20140807
  30. NONAN [Concomitant]
     Indication: PRODUCT USED FOR UNKNOWN INDICATION
     Dosage: UNK
     Route: 065
     Dates: start: 201408
  31. KARDEGIC [Concomitant]
     Active Substance: ASPIRIN LYSINE
     Indication: PRODUCT USED FOR UNKNOWN INDICATION
     Dosage: 75 MG, QD
     Route: 048
  32. PHOSPHONEUROS [Concomitant]
     Active Substance: CALCIUM PHOSPHATE, DIBASIC, ANHYDROUS\MAGNESIUM GLYCEROPHOSPHATE\PHOSPHORIC ACID\SODIUM PHOSPHATE, DIBASIC
     Indication: PRODUCT USED FOR UNKNOWN INDICATION
     Dosage: 50 DROPS, TID
     Route: 048
  33. PARACETAMOL [Concomitant]
     Active Substance: ACETAMINOPHEN
  34. GLIVEC [Suspect]
     Active Substance: IMATINIB MESYLATE
     Indication: ACUTE LYMPHOCYTIC LEUKAEMIA
     Dosage: 400 MG, QD
     Route: 048
     Dates: start: 20140717
  35. CYTARABINE. [Suspect]
     Active Substance: CYTARABINE
     Dosage: 40 MG, UNK
     Route: 037
     Dates: start: 20140808
  36. METHOTREXATE [Suspect]
     Active Substance: METHOTREXATE
     Dosage: 15 MG, UNK
     Route: 037
     Dates: start: 20140725
  37. METHOTREXATE [Suspect]
     Active Substance: METHOTREXATE
     Dosage: 15 MG, UNK
     Route: 037
     Dates: start: 20140808
  38. DEXAMETHASONE. [Suspect]
     Active Substance: DEXAMETHASONE
     Indication: ACUTE LYMPHOCYTIC LEUKAEMIA
     Dosage: 40 MG, UNK
     Route: 037
     Dates: start: 20140717
  39. DEXAMETHASONE. [Suspect]
     Active Substance: DEXAMETHASONE
     Dosage: 40 MG, UNK
     Route: 065
     Dates: start: 20140801
  40. KYTRIL [Concomitant]
     Active Substance: GRANISETRON HYDROCHLORIDE
     Indication: PRODUCT USED FOR UNKNOWN INDICATION
     Dosage: 2 DF, UNK
     Route: 065
     Dates: start: 20140727
  41. TIAPRIDAL [Concomitant]
     Active Substance: TIAPRIDE HYDROCHLORIDE
     Indication: PRODUCT USED FOR UNKNOWN INDICATION
     Dosage: 50 MG, TID
     Route: 048
     Dates: start: 201408
  42. CERNEVIT [Concomitant]
     Active Substance: VITAMINS
     Indication: PRODUCT USED FOR UNKNOWN INDICATION
     Dosage: UNK
     Route: 048
     Dates: start: 201408

REACTIONS (10)
  - Vomiting [Recovered/Resolved]
  - Nausea [Recovered/Resolved]
  - Lymphopenia [Recovered/Resolved]
  - Thrombocytopenia [Recovered/Resolved]
  - Mucosal inflammation [Recovered/Resolved]
  - Fungal infection [Recovered/Resolved]
  - Leukopenia [Recovered/Resolved]
  - Cytopenia [Recovered/Resolved]
  - Anaemia [Recovered/Resolved]
  - Condition aggravated [Recovered/Resolved]

NARRATIVE: CASE EVENT DATE: 20140728
